FAERS Safety Report 15408347 (Version 2)
Quarter: 2020Q2

REPORT INFORMATION
  Report Type: Spontaneous
  Country: US (occurrence: US)
  Receive Date: 20180920
  Receipt Date: 20200527
  Transmission Date: 20200713
  Serious: Yes (Other)
  Sender: FDA-Public Use
  Company Number: US-BRISTOL-MYERS SQUIBB COMPANY-BMS-2018-086051

PATIENT
  Age: 47 Year
  Sex: Female

DRUGS (1)
  1. DASATINIB. [Suspect]
     Active Substance: DASATINIB
     Indication: HISTIOCYTIC SARCOMA
     Route: 065

REACTIONS (2)
  - Pancreatitis acute [Unknown]
  - Intentional product use issue [Unknown]
